FAERS Safety Report 5457471-1 (Version None)
Quarter: 2007Q3

REPORT INFORMATION
  Report Type: 
  Country: None (occurrence: None)
  Receive Date: 20070918
  Receipt Date: 20070228
  Transmission Date: 20080115
  Serious: Yes (Hospitalization)
  Sender: FDA-Public Use
  Company Number: US-ASTRAZENECA-2007UW04263

PATIENT
  Age: 2216 Day
  Sex: Female
  Weight: 20.9 kg

DRUGS (14)
  1. SEROQUEL [Suspect]
     Indication: BIPOLAR DISORDER
     Route: 048
     Dates: start: 20040927, end: 20041028
  2. SEROQUEL [Suspect]
     Indication: ATTENTION DEFICIT/HYPERACTIVITY DISORDER
     Route: 048
     Dates: start: 20040927, end: 20041028
  3. ZYPREXA [Suspect]
     Dates: start: 20040616, end: 20040901
  4. STRATTERA [Concomitant]
  5. RISPERDAL [Concomitant]
     Dates: start: 20051024, end: 20060103
  6. RISPERDAL [Concomitant]
     Dates: start: 20060131
  7. TRILEPTAL [Concomitant]
     Dosage: 300MG IN 5ML SUSPENSION
     Dates: start: 20050119
  8. TRILEPTAL [Concomitant]
     Dosage: 300MG IN 5ML SUSPENSION
     Dates: start: 20050414
  9. TRILEPTAL [Concomitant]
     Dosage: 300MG IN 5ML SUSPENSION
     Dates: start: 20050602
  10. TRILEPTAL [Concomitant]
     Dosage: 300MG IN 5ML SUSPENSION
     Dates: start: 20050830
  11. TRILEPTAL [Concomitant]
     Dosage: 300MG IN 5ML SUSPENSION
     Dates: start: 20051024
  12. TRILEPTAL [Concomitant]
     Dosage: 300MG IN 5ML SUSPENSION
     Dates: start: 20051212
  13. TRILEPTAL [Concomitant]
     Dosage: 300MG IN 5ML SUSPENSION
     Dates: start: 20060411
  14. TAMIFLU [Concomitant]
     Dates: start: 20060217

REACTIONS (1)
  - DIABETES MELLITUS [None]
